FAERS Safety Report 8911605 (Version 3)
Quarter: 2012Q4

REPORT INFORMATION
  Report Type: 
  Country: JP (occurrence: JP)
  Receive Date: 20121116
  Receipt Date: 20121205
  Transmission Date: 20130627
  Serious: Yes (Life-Threatening, Other)
  Sender: FDA-Public Use
  Company Number: JP-PFIZER INC-2012262678

PATIENT
  Age: 34 Year
  Sex: Female
  Weight: 51.8 kg

DRUGS (14)
  1. JZOLOFT [Suspect]
     Indication: DEPRESSION
     Dosage: 25 mg daily
     Route: 048
     Dates: start: 20070825, end: 20071011
  2. JZOLOFT [Interacting]
     Dosage: 50 mg, 1x/day
     Route: 048
     Dates: start: 20071012, end: 20071019
  3. JZOLOFT [Interacting]
     Dosage: 25 mg, 1x/day
     Route: 048
     Dates: start: 20071020, end: 20120316
  4. JZOLOFT [Interacting]
     Dosage: 12.5 mg, 1x/day
     Route: 048
     Dates: start: 20120317, end: 20121011
  5. TRAMCET [Interacting]
     Indication: LOW BACK PAIN
     Dosage: 1 DF, 2x/day
     Route: 048
     Dates: start: 20120710, end: 20120924
  6. TRAMCET [Interacting]
     Dosage: 1 DF, 2x/day
     Route: 048
     Dates: start: 20121005
  7. ABILIFY [Suspect]
     Indication: BIPOLAR II DISORDER
     Dosage: 1.5 mg/day
     Route: 048
     Dates: start: 20110618, end: 20111113
  8. LAMICTAL [Suspect]
     Indication: BIPOLAR II DISORDER
     Dosage: UNK
     Dates: start: 20111015, end: 20111022
  9. DEPAKENE [Concomitant]
     Indication: BIPOLAR II DISORDER
     Dosage: 100 mg daily
     Route: 048
     Dates: start: 20070818, end: 20110408
  10. DEPAKENE [Concomitant]
     Dosage: 200 mg, 2x/day
     Route: 048
     Dates: start: 20110409, end: 20120914
  11. DEPAKENE [Concomitant]
     Dosage: 100 mg daily
     Route: 048
     Dates: start: 20120915
  12. RIVOTRIL [Concomitant]
     Indication: BIPOLAR II DISORDER
     Dosage: 1 mg, 2x/day
     Route: 048
     Dates: start: 20070818, end: 20080820
  13. RIVOTRIL [Concomitant]
     Dosage: 0.5 mg, 1x/day
     Route: 048
     Dates: start: 20080821
  14. SEROQUEL [Concomitant]
     Indication: BIPOLAR II DISORDER
     Dosage: 25 mg, 1x/day
     Route: 048
     Dates: start: 20091117

REACTIONS (11)
  - Drug interaction [Recovered/Resolved]
  - Suicide attempt [Recovered/Resolved]
  - Intervertebral disc protrusion [Recovering/Resolving]
  - Memory impairment [Unknown]
  - Malaise [Recovered/Resolved]
  - Fatigue [Recovered/Resolved]
  - Irritability [Unknown]
  - Anger [Unknown]
  - Stress [Unknown]
  - Insomnia [Recovered/Resolved]
  - Somnolence [Recovered/Resolved]
